FAERS Safety Report 13786373 (Version 2)
Quarter: 2017Q3

REPORT INFORMATION
  Report Type: Spontaneous
  Country: US (occurrence: US)
  Receive Date: 20170725
  Receipt Date: 20170816
  Transmission Date: 20171127
  Serious: No
  Sender: FDA-Public Use
  Company Number: US-TEVA-789968ACC

PATIENT
  Age: 29 Year
  Sex: Female
  Weight: 68.55 kg

DRUGS (2)
  1. KLONOPIN [Concomitant]
     Active Substance: CLONAZEPAM
     Indication: ANXIETY
  2. PARAGARD T 380A [Suspect]
     Active Substance: COPPER
     Indication: CONTRACEPTION
     Dates: start: 20170524, end: 20170707

REACTIONS (6)
  - Pelvic pain [Unknown]
  - Vaginal discharge [Unknown]
  - Menorrhagia [Unknown]
  - Device expulsion [Recovered/Resolved]
  - Muscle spasms [Unknown]
  - Vaginal odour [Unknown]

NARRATIVE: CASE EVENT DATE: 20170705
